FAERS Safety Report 24861756 (Version 3)
Quarter: 2025Q2

REPORT INFORMATION
  Report Type: Other
  Country: US (occurrence: US)
  Receive Date: 20250120
  Receipt Date: 20250513
  Transmission Date: 20250716
  Serious: No
  Sender: TRAVERE THERAPEUTICS
  Company Number: US-TRAVERE-2024TVT01364

PATIENT
  Age: 55 Year
  Sex: Male

DRUGS (1)
  1. FILSPARI [Suspect]
     Active Substance: SPARSENTAN
     Indication: IgA nephropathy
     Route: 048
     Dates: start: 20241220

REACTIONS (4)
  - Fatigue [None]
  - Dizziness [Recovered/Resolved]
  - Headache [None]
  - Wrong technique in product usage process [Unknown]
